FAERS Safety Report 7708456-3 (Version None)
Quarter: 2011Q3

REPORT INFORMATION
  Report Type: 
  Country: None (occurrence: None)
  Receive Date: 20110825
  Receipt Date: 20110815
  Transmission Date: 20111222
  Serious: Yes (Other)
  Sender: FDA-Public Use
  Company Number: US-BAYER-201039698NA

PATIENT
  Age: 21 Year
  Sex: Female
  Weight: 54.422 kg

DRUGS (16)
  1. DROSPIRENONE AND ETHINYL ESTRADIOL [Suspect]
     Indication: PREMENSTRUAL SYNDROME
  2. YASMIN [Suspect]
     Indication: DYSMENORRHOEA
  3. METHYLPREDNISOLONE [Concomitant]
  4. DROSPIRENONE AND ETHINYL ESTRADIOL [Suspect]
     Indication: ABDOMINAL PAIN LOWER
  5. POLYETHYLENE GLYCOL [Concomitant]
  6. YASMIN [Suspect]
     Indication: PRODUCT USED FOR UNKNOWN INDICATION
     Route: 048
     Dates: start: 20050201, end: 20081001
  7. ZYRTEC [Concomitant]
     Indication: MULTIPLE ALLERGIES
     Dosage: UNK
     Dates: start: 20040101
  8. ADVAIR DISKUS 100/50 [Concomitant]
     Indication: ASTHMA
     Dosage: UNK
     Dates: start: 20040101
  9. DROSPIRENONE AND ETHINYL ESTRADIOL [Suspect]
     Indication: CONTRACEPTION
     Dosage: UNK
     Dates: start: 20080724, end: 20091021
  10. SINGULAIR [Concomitant]
     Indication: ASTHMA
     Dosage: UNK
     Dates: start: 20040101
  11. HYDROCODONE BITARTRATE AND ACETAMINOPHEN [Concomitant]
  12. IBUPROFEN [Concomitant]
     Dosage: UNK
     Dates: start: 20010101, end: 20110101
  13. YASMIN [Suspect]
     Indication: ABDOMINAL PAIN LOWER
  14. DROSPIRENONE AND ETHINYL ESTRADIOL [Suspect]
     Indication: DYSMENORRHOEA
  15. PROVENTIL-HFA [Concomitant]
     Indication: ASTHMA
     Dosage: UNK
     Dates: start: 20080101
  16. VICODIN [Concomitant]

REACTIONS (7)
  - PAIN [None]
  - BILIARY DYSKINESIA [None]
  - DIARRHOEA [None]
  - CHOLECYSTITIS CHRONIC [None]
  - MUSCLE SPASMS [None]
  - BILIARY COLIC [None]
  - GALLBLADDER DISORDER [None]
